FAERS Safety Report 6877718-4 (Version None)
Quarter: 2010Q3

REPORT INFORMATION
  Report Type: 
  Country: None (occurrence: None)
  Receive Date: 20100727
  Receipt Date: 20100614
  Transmission Date: 20110219
  Serious: No
  Sender: FDA-Public Use
  Company Number: US-ABBOTT-10P-163-0652735-00

PATIENT
  Sex: Female
  Weight: 54.934 kg

DRUGS (1)
  1. SYNTHROID [Suspect]
     Indication: HYPOTHYROIDISM
     Route: 048

REACTIONS (4)
  - COUGH [None]
  - FATIGUE [None]
  - RHINORRHOEA [None]
  - SNEEZING [None]
